FAERS Safety Report 5485371-X (Version None)
Quarter: 2007Q4

REPORT INFORMATION
  Report Type: 
  Country: None (occurrence: None)
  Receive Date: 20071015
  Receipt Date: 20071001
  Transmission Date: 20080405
  Serious: Yes (Death, Other)
  Sender: FDA-Public Use
  Company Number: AU-BRISTOL-MYERS SQUIBB COMPANY-13933049

PATIENT
  Age: 68 Year
  Sex: Male

DRUGS (6)
  1. FUROSEMIDE [Suspect]
  2. ATENOLOL [Suspect]
  3. WARFARIN SODIUM [Suspect]
  4. SIMVASTATIN [Suspect]
  5. CANDESARTAN CILEXETIL [Suspect]
  6. ESOMEPRAZOLE [Suspect]

REACTIONS (2)
  - CARDIAC FAILURE [None]
  - INTERSTITIAL LUNG DISEASE [None]
